FAERS Safety Report 4503107-3 (Version None)
Quarter: 2004Q4

REPORT INFORMATION
  Report Type: 
  Country: None (occurrence: None)
  Receive Date: 20041117
  Receipt Date: 20041112
  Transmission Date: 20050328
  Serious: Yes (Other)
  Sender: FDA-Public Use
  Company Number: BR-ROCHE-386176

PATIENT
  Sex: Female

DRUGS (1)
  1. XENICAL [Suspect]
     Route: 048

REACTIONS (1)
  - PANCREATITIS [None]
